FAERS Safety Report 9372611 (Version 1)
Quarter: 2013Q2

REPORT INFORMATION
  Report Type: Report from Study
  Country: US (occurrence: US)
  Receive Date: 20130627
  Receipt Date: 20130627
  Transmission Date: 20140414
  Serious: Yes (Other)
  Sender: FDA-Public Use
  Company Number: US-MYLANLABS-2013S1002687

PATIENT
  Age: 22 Year
  Sex: Male
  Weight: 81.7 kg

DRUGS (4)
  1. CLOZAPINE TABLETS [Suspect]
     Indication: SCHIZOPHRENIA
     Route: 048
     Dates: start: 2010, end: 20130204
  2. METOPROLOL [Concomitant]
     Route: 048
  3. LITHIUM [Concomitant]
     Route: 048
  4. SERTRALINE [Concomitant]
     Route: 048

REACTIONS (2)
  - Granulocytopenia [Recovered/Resolved]
  - Leukopenia [Recovered/Resolved]
